FAERS Safety Report 6877396-4 (Version None)
Quarter: 2010Q3

REPORT INFORMATION
  Report Type: 
  Country: None (occurrence: None)
  Receive Date: 20100719
  Receipt Date: 20100706
  Transmission Date: 20110219
  Serious: Yes (Other)
  Sender: FDA-Public Use
  Company Number: DKLU1063398

PATIENT

DRUGS (1)
  1. PANHEMATIN [Suspect]
     Indication: PRODUCT USED FOR UNKNOWN INDICATION

REACTIONS (3)
  - PANCYTOPENIA [None]
  - PLATELET FUNCTION TEST ABNORMAL [None]
  - THROMBOCYTOPENIA [None]
